FAERS Safety Report 8345531-7 (Version None)
Quarter: 2012Q2

REPORT INFORMATION
  Report Type: 
  Country: None (occurrence: None)
  Receive Date: 20120508
  Receipt Date: 20120503
  Transmission Date: 20120825
  Serious: Yes (Other)
  Sender: FDA-Public Use
  Company Number: PHHY2012US038409

PATIENT
  Age: 49 Year
  Sex: Female

DRUGS (1)
  1. BUFFERIN [Suspect]
     Indication: BLOOD DISORDER
     Dosage: 1 DF, DAILY
     Route: 048
     Dates: start: 19960101, end: 20120101

REACTIONS (2)
  - MENINGITIS PNEUMOCOCCAL [None]
  - GRAND MAL CONVULSION [None]
